FAERS Safety Report 18295798 (Version 1)
Quarter: 2020Q3

REPORT INFORMATION
  Report Type: Spontaneous
  Country: US (occurrence: US)
  Receive Date: 20200922
  Receipt Date: 20200922
  Transmission Date: 20201103
  Serious: No
  Sender: FDA-Public Use
  Company Number: US-AMARIN PHARMA, INC.-2020AMR000239

PATIENT
  Age: 51 Year
  Sex: Male
  Weight: 77.18 kg

DRUGS (2)
  1. BABY ASPIRIN [Concomitant]
     Active Substance: ASPIRIN
     Indication: PROPHYLAXIS
  2. VASCEPA [Suspect]
     Active Substance: ICOSAPENT ETHYL
     Indication: PRODUCT USED FOR UNKNOWN INDICATION
     Route: 048

REACTIONS (7)
  - Product storage error [Unknown]
  - Weight decreased [Unknown]
  - Blood triglycerides increased [Unknown]
  - Eructation [Recovered/Resolved]
  - Product odour abnormal [Not Recovered/Not Resolved]
  - Product colour issue [Not Recovered/Not Resolved]
  - Intentional product misuse [Unknown]
